FAERS Safety Report 14191159 (Version 3)
Quarter: 2017Q4

REPORT INFORMATION
  Report Type: Spontaneous
  Country: GB (occurrence: GB)
  Receive Date: 20171115
  Receipt Date: 20171218
  Transmission Date: 20180321
  Serious: Yes (Other)
  Sender: FDA-Public Use
  Company Number: GB-009507513-1711GBR004367

PATIENT
  Age: 18 Year
  Sex: Female

DRUGS (1)
  1. ETONOGESTREL IMPLANT- UNKNOWN [Suspect]
     Active Substance: ETONOGESTREL
     Indication: MENORRHAGIA
     Dosage: 1 IMPLANT, UNK
     Route: 059

REACTIONS (4)
  - Complication associated with device [Recovered/Resolved]
  - Device dislocation [Not Recovered/Not Resolved]
  - Device embolisation [Not Recovered/Not Resolved]
  - Product use in unapproved indication [Unknown]
